FAERS Safety Report 5715517-7 (Version None)
Quarter: 2008Q2

REPORT INFORMATION
  Report Type: 
  Country: None (occurrence: None)
  Receive Date: 20080422
  Receipt Date: 20080411
  Transmission Date: 20081010
  Serious: Yes (Hospitalization, Other)
  Sender: FDA-Public Use
  Company Number: 2006BI012000

PATIENT
  Age: 55 Year
  Sex: Female
  Weight: 68.0396 kg

DRUGS (1)
  1. AVONEX [Suspect]
     Indication: MULTIPLE SCLEROSIS
     Dosage: 30 UG; QW; IM
     Route: 030
     Dates: start: 20050101

REACTIONS (12)
  - ABDOMINAL PAIN UPPER [None]
  - AMNESIA [None]
  - BLOOD PRESSURE FLUCTUATION [None]
  - DEHYDRATION [None]
  - HYPOTENSION [None]
  - MOVEMENT DISORDER [None]
  - MULTIPLE SCLEROSIS [None]
  - PARALYSIS [None]
  - PNEUMONIA [None]
  - PYELONEPHRITIS [None]
  - TACHYCARDIA [None]
  - URINARY TRACT INFECTION [None]
